FAERS Safety Report 24135290 (Version 2)
Quarter: 2024Q3

REPORT INFORMATION
  Report Type: Spontaneous
  Country: US (occurrence: US)
  Receive Date: 20240725
  Receipt Date: 20240813
  Transmission Date: 20241017
  Serious: Yes (Hospitalization, Other)
  Sender: BRISTOL MYERS SQUIBB
  Company Number: US-BRISTOL-MYERS SQUIBB COMPANY-2024-117645

PATIENT
  Age: 75 Year
  Sex: Male
  Weight: 81.19 kg

DRUGS (1)
  1. REVLIMID [Suspect]
     Active Substance: LENALIDOMIDE
     Indication: Plasma cell myeloma
     Dosage: 3 WEEKS ON , 1 WEEK OFF
     Route: 048

REACTIONS (5)
  - Sluggishness [Not Recovered/Not Resolved]
  - Pulmonary oedema [Unknown]
  - Pneumonia [Unknown]
  - Nausea [Unknown]
  - Diarrhoea [Unknown]
